FAERS Safety Report 25389111 (Version 1)
Quarter: 2025Q2

REPORT INFORMATION
  Report Type: Spontaneous
  Country: PT (occurrence: PT)
  Receive Date: 20250603
  Receipt Date: 20250603
  Transmission Date: 20250717
  Serious: No
  Sender: ALKEM
  Company Number: PT-ALKEM LABORATORIES LIMITED-PT-ALKEM-2024-14091

PATIENT
  Age: 59 Year
  Sex: Female

DRUGS (1)
  1. OLMESARTAN [Suspect]
     Active Substance: OLMESARTAN
     Indication: Hypertension
     Route: 065

REACTIONS (1)
  - Sprue-like enteropathy [Recovering/Resolving]
